FAERS Safety Report 8593076-1 (Version None)
Quarter: 2012Q3

REPORT INFORMATION
  Report Type: 
  Country: None (occurrence: None)
  Receive Date: 20120814
  Receipt Date: 20120807
  Transmission Date: 20120928
  Serious: Yes (Other)
  Sender: FDA-Public Use
  Company Number: JP-GLAXOSMITHKLINE-B0821913A

PATIENT
  Age: 9 Decade
  Sex: Male

DRUGS (2)
  1. DUTASTERIDE [Suspect]
     Indication: BENIGN PROSTATIC HYPERPLASIA
     Route: 048
  2. FLIVAS [Concomitant]
     Route: 048

REACTIONS (1)
  - HEPATIC FUNCTION ABNORMAL [None]
